FAERS Safety Report 4972968-6 (Version None)
Quarter: 2006Q2

REPORT INFORMATION
  Report Type: 
  Country: None (occurrence: None)
  Receive Date: 20060410
  Receipt Date: 20060329
  Transmission Date: 20061013
  Serious: Yes (Other)
  Sender: FDA-Public Use
  Company Number: 223538

PATIENT
  Age: 5 Year
  Sex: Male
  Weight: 10.7 kg

DRUGS (2)
  1. NUTROPIN [Suspect]
     Indication: ASTROCYTOMA
     Dosage: 0.3 MG, SUBCUTANEOUS
     Route: 058
     Dates: start: 20051108, end: 20060202
  2. SYNTHROID [Concomitant]

REACTIONS (2)
  - ASTROCYTOMA [None]
  - NEOPLASM RECURRENCE [None]
